FAERS Safety Report 4502139-9 (Version None)
Quarter: 2004Q4

REPORT INFORMATION
  Report Type: 
  Country: None (occurrence: None)
  Receive Date: 20041116
  Receipt Date: 20041105
  Transmission Date: 20050328
  Serious: Yes (Death, Hospitalization, Other)
  Sender: FDA-Public Use
  Company Number: US-BRISTOL-MYERS SQUIBB COMPANY-12757654

PATIENT
  Sex: Male

DRUGS (3)
  1. PROLIXIN DECANOATE [Suspect]
     Indication: PSYCHOTIC DISORDER
     Dosage: RECEIVED 50MG ON 27-JUL-04, 24-AUG, 31-AUG, 07-SEP
     Route: 030
     Dates: start: 20040727
  2. GEODON [Concomitant]
     Route: 048
  3. DEPAKOTE [Concomitant]
     Route: 048

REACTIONS (13)
  - BRADYCARDIA [None]
  - CONFUSIONAL STATE [None]
  - DYSTONIA [None]
  - HYPERGLYCAEMIA [None]
  - HYPERKALAEMIA [None]
  - HYPOTENSION [None]
  - LEUKOPENIA [None]
  - MENTAL STATUS CHANGES [None]
  - MUSCLE RIGIDITY [None]
  - OEDEMA PERIPHERAL [None]
  - PNEUMONIA ASPIRATION [None]
  - THROMBOCYTOPENIA [None]
  - URINARY INCONTINENCE [None]
